FAERS Safety Report 18464123 (Version 2)
Quarter: 2022Q1

REPORT INFORMATION
  Report Type: Report from Study
  Country: IT (occurrence: IT)
  Receive Date: 20201104
  Receipt Date: 20220130
  Transmission Date: 20220423
  Serious: Yes (Other)
  Sender: FDA-Public Use
  Company Number: IT-JAZZ-2019-IT-017360

PATIENT
  Age: 40 Year
  Weight: 85 kg

DRUGS (5)
  1. DEFITELIO [Suspect]
     Active Substance: DEFIBROTIDE SODIUM
     Indication: Venoocclusive disease
     Dosage: THERAPY DETAILS NOT PROVIDED
     Route: 065
     Dates: start: 20191111
  2. DEFITELIO [Suspect]
     Active Substance: DEFIBROTIDE SODIUM
     Indication: Prophylaxis
  3. BUSULFAN [Concomitant]
     Active Substance: BUSULFAN
     Indication: Bone marrow conditioning regimen
  4. CYCLOPHOSPHAMIDE [Concomitant]
     Active Substance: CYCLOPHOSPHAMIDE
     Indication: Bone marrow conditioning regimen
  5. GEMTUZUMAB OZOGAMICIN [Concomitant]
     Active Substance: GEMTUZUMAB OZOGAMICIN
     Indication: Chemotherapy

REACTIONS (2)
  - Venoocclusive disease [Unknown]
  - Off label use [Unknown]
